FAERS Safety Report 5510178-4 (Version None)
Quarter: 2007Q4

REPORT INFORMATION
  Report Type: 
  Country: None (occurrence: None)
  Receive Date: 20071108
  Receipt Date: 20071029
  Transmission Date: 20080405
  Serious: Yes (Life-Threatening)
  Sender: FDA-Public Use
  Company Number: JP-ROCHE-529010

PATIENT
  Age: 43 Year
  Sex: Male

DRUGS (1)
  1. ROCEPHIN [Suspect]
     Route: 041
     Dates: start: 20071029, end: 20071029

REACTIONS (1)
  - SHOCK [None]
